FAERS Safety Report 24802099 (Version 2)
Quarter: 2025Q1

REPORT INFORMATION
  Report Type: Report from Study
  Country: ES (occurrence: ES)
  Receive Date: 20250102
  Receipt Date: 20250210
  Transmission Date: 20250408
  Serious: Yes (Other)
  Sender: ABBVIE
  Company Number: ES-ABBVIE-6069539

PATIENT
  Age: 69 Year
  Sex: Female

DRUGS (1)
  1. CARBIDOPA\LEVODOPA [Suspect]
     Active Substance: CARBIDOPA\LEVODOPA
     Indication: Parkinson^s disease
     Route: 058
     Dates: start: 20240508

REACTIONS (5)
  - Hypertension [Not Recovered/Not Resolved]
  - Myalgia [Not Recovered/Not Resolved]
  - Nocturia [Not Recovered/Not Resolved]
  - Restlessness [Not Recovered/Not Resolved]
  - Logorrhoea [Recovering/Resolving]

NARRATIVE: CASE EVENT DATE: 20241228
